FAERS Safety Report 17079719 (Version 1)
Quarter: 2019Q4

REPORT INFORMATION
  Report Type: Spontaneous
  Country: US (occurrence: US)
  Receive Date: 20191029
  Receipt Date: 20191029
  Transmission Date: 20200122
  Serious: No
  Sender: FDA-Public Use
  Company Number: None

PATIENT
  Age: 85 Year
  Sex: Female
  Weight: 54.43 kg

DRUGS (16)
  1. LISINOPRIL. [Concomitant]
     Active Substance: LISINOPRIL
  2. SIMVASTATIN. [Concomitant]
     Active Substance: SIMVASTATIN
  3. MOCCASION EVENING PRIMOSE [Concomitant]
  4. LEVOTHYROXIN [Concomitant]
     Active Substance: LEVOTHYROXINE
  5. PROBIOTIC [Concomitant]
     Active Substance: PROBIOTICS NOS
  6. GABAPENTIN. [Suspect]
     Active Substance: GABAPENTIN
     Indication: HOT FLUSH
     Dosage: ?          QUANTITY:100 MG MILLIGRAM(S);?
     Route: 048
     Dates: start: 20190906, end: 20190907
  7. CIPROFLOXACIN 250MG [Concomitant]
     Active Substance: CIPROFLOXACIN
  8. CHONDROITIN [Concomitant]
     Active Substance: CHONDROITIN
  9. ESTROVEN [Concomitant]
     Active Substance: DIETARY SUPPLEMENT
  10. COQ10 [Concomitant]
     Active Substance: UBIDECARENONE
  11. PREVISION/AREDS2 [Concomitant]
  12. VITAMIN E [Concomitant]
     Active Substance: .ALPHA.-TOCOPHEROL
  13. LUTEIN [Concomitant]
     Active Substance: LUTEIN
  14. OXYBUTYNIN 5MG [Suspect]
     Active Substance: OXYBUTYNIN
     Dosage: ?          QUANTITY:5 MG MILLIGRAM(S);?
  15. ASPIRIN. [Concomitant]
     Active Substance: ASPIRIN
  16. NEXIUM [Concomitant]
     Active Substance: ESOMEPRAZOLE MAGNESIUM

REACTIONS (5)
  - Feeling jittery [None]
  - Negative thoughts [None]
  - Dizziness [None]
  - Lethargy [None]
  - Feeling abnormal [None]

NARRATIVE: CASE EVENT DATE: 20191010
